FAERS Safety Report 9109871 (Version 1)
Quarter: 2013Q1

REPORT INFORMATION
  Report Type: Spontaneous
  Country: US (occurrence: US)
  Receive Date: 20130222
  Receipt Date: 20130222
  Transmission Date: 20140127
  Serious: No
  Sender: FDA-Public Use
  Company Number: US-PFIZER INC-2013063385

PATIENT
  Age: 67 Year
  Sex: Male

DRUGS (1)
  1. HYDROCHLOROTHIAZIDE/SPIRONOLACTONE [Suspect]
     Indication: HYPERTENSION
     Dosage: UNK

REACTIONS (1)
  - Blood creatinine increased [Unknown]
